FAERS Safety Report 5947975-7 (Version None)
Quarter: 2008Q4

REPORT INFORMATION
  Report Type: 
  Country: None (occurrence: None)
  Receive Date: 20081110
  Receipt Date: 20081110
  Transmission Date: 20090506
  Serious: Yes (Life-Threatening)
  Sender: FDA-Public Use
  Company Number: None

PATIENT
  Age: 9 Year
  Sex: Male
  Weight: 24.9478 kg

DRUGS (1)
  1. CEPHALEXIN [Suspect]
     Dosage: 2 TEA SPOON 2 TIMES DAILY

REACTIONS (1)
  - RASH PAPULAR [None]
